FAERS Safety Report 10125801 (Version 2)
Quarter: 2014Q2

REPORT INFORMATION
  Report Type: Report from Study
  Country: SG (occurrence: SG)
  Receive Date: 20140425
  Receipt Date: 20140428
  Transmission Date: 20141212
  Serious: Yes (Life-Threatening, Hospitalization, Other)
  Sender: FDA-Public Use
  Company Number: SG-009507513-1404SGP012375

PATIENT
  Age: 65 Year
  Sex: Male
  Weight: 84 kg

DRUGS (9)
  1. SIMVASTATIN [Suspect]
     Indication: ACUTE CORONARY SYNDROME
     Dosage: UNK
     Route: 048
     Dates: start: 20081111, end: 20140317
  2. ASPIRIN [Concomitant]
     Dosage: 100 MG, QAM
     Route: 048
     Dates: start: 20081111
  3. CALCIUM CARBONATE [Concomitant]
     Dosage: 1 TAB EVERY MORNING
     Route: 048
     Dates: start: 20081111
  4. ADALAT LA [Concomitant]
     Dosage: 30 MG, BID
     Route: 048
     Dates: start: 20081111
  5. METFORMIN HYDROCHLORIDE [Concomitant]
     Dosage: 850 MG, BID
     Route: 048
     Dates: start: 20081111
  6. OMEPRAZOLE [Concomitant]
     Dosage: 40 MG, QAM
     Route: 048
     Dates: start: 20081111
  7. ATENOLOL [Concomitant]
     Dosage: 25 MG, QAM
     Route: 048
     Dates: start: 20081111
  8. CAPTOPRIL [Concomitant]
     Dosage: 50 MG, BID
     Route: 048
     Dates: start: 20081111
  9. GLIPIZIDE [Concomitant]
     Dosage: 20 MG, BID
     Route: 048
     Dates: start: 20081111

REACTIONS (1)
  - Adenocarcinoma of colon [Recovered/Resolved]
